FAERS Safety Report 11746713 (Version 1)
Quarter: 2015Q4

REPORT INFORMATION
  Report Type: Spontaneous
  Country: US (occurrence: US)
  Receive Date: 20151117
  Receipt Date: 20151117
  Transmission Date: 20160304
  Serious: Yes (Hospitalization)
  Sender: FDA-Public Use
  Company Number: US-UNITED THERAPEUTICS-UNT-2015-011933

PATIENT
  Age: 46 Year
  Sex: Female
  Weight: 79.82 kg

DRUGS (2)
  1. REMODULIN [Suspect]
     Active Substance: TREPROSTINIL
     Indication: PULMONARY ARTERIAL HYPERTENSION
     Dosage: 0.0617 ?G/KG, CONTINUING
     Route: 041
     Dates: start: 20150403
  2. REMODULIN [Suspect]
     Active Substance: TREPROSTINIL
     Dosage: 0.072 ?G/KG, CONTINUING
     Route: 041

REACTIONS (3)
  - Device dislocation [Unknown]
  - Device related infection [Unknown]
  - Drug dose omission [Unknown]

NARRATIVE: CASE EVENT DATE: 2015
